FAERS Safety Report 5247176-4 (Version None)
Quarter: 2007Q1

REPORT INFORMATION
  Report Type: 
  Country: None (occurrence: None)
  Receive Date: 20070221
  Receipt Date: 20070213
  Transmission Date: 20070707
  Serious: Yes (Hospitalization)
  Sender: FDA-Public Use
  Company Number: 235266K06USA

PATIENT
  Age: 66 Year
  Sex: Female

DRUGS (3)
  1. REBIF [Suspect]
     Indication: MULTIPLE SCLEROSIS
     Dosage: 44 MCG, 3 IN 1 WEEKS, SUBCUTANEOUS
     Route: 058
     Dates: start: 20060529
  2. VALIUM [Concomitant]
  3. GLYCOLAX [Concomitant]

REACTIONS (5)
  - CYSTITIS [None]
  - DYSPNOEA [None]
  - NAUSEA [None]
  - PNEUMONIA [None]
  - SEPSIS [None]
